FAERS Safety Report 5937996-2 (Version None)
Quarter: 2008Q4

REPORT INFORMATION
  Report Type: 
  Country: None (occurrence: None)
  Receive Date: 20081031
  Receipt Date: 20081022
  Transmission Date: 20090506
  Serious: Yes (Hospitalization, Other)
  Sender: FDA-Public Use
  Company Number: JP-PFIZER INC-2008081613

PATIENT
  Age: 76 Year
  Sex: Female
  Weight: 50 kg

DRUGS (3)
  1. VFEND [Suspect]
     Dosage: DAILY DOSE:600MG
     Route: 042
     Dates: start: 20080919, end: 20080919
  2. VFEND [Suspect]
     Route: 042
     Dates: start: 20080920, end: 20080921
  3. VFEND [Suspect]
     Route: 042
     Dates: start: 20080922, end: 20080922

REACTIONS (1)
  - OLIGURIA [None]
